FAERS Safety Report 18149869 (Version 1)
Quarter: 2020Q3

REPORT INFORMATION
  Report Type: Spontaneous
  Country: US (occurrence: US)
  Receive Date: 20200813
  Receipt Date: 20200813
  Transmission Date: 20201103
  Serious: No
  Sender: FDA-Public Use
  Company Number: None

PATIENT
  Age: 72 Year
  Sex: Female
  Weight: 70.76 kg

DRUGS (1)
  1. CIMZIA [Suspect]
     Active Substance: CERTOLIZUMAB PEGOL
     Indication: PSORIATIC ARTHROPATHY
     Dosage: INJECT 200MG (1 SYRINGE) SUBCUTANEOUSLY  EVERY 2 WEEKS AS DIRECTED
     Route: 058
     Dates: start: 202001

REACTIONS (1)
  - Arthralgia [None]
